FAERS Safety Report 11846507 (Version 1)
Quarter: 2015Q4

REPORT INFORMATION
  Report Type: Other
  Country: US (occurrence: US)
  Receive Date: 20151217
  Receipt Date: 20151217
  Transmission Date: 20160305
  Serious: No
  Sender: FDA-Public Use
  Company Number: US-GALENA BIOPHARMA-1045614

PATIENT
  Sex: Male

DRUGS (2)
  1. ABSTRAL [Suspect]
     Active Substance: FENTANYL CITRATE
     Indication: OFF LABEL USE
     Route: 060
     Dates: start: 20141101
  2. PERCOCET [Concomitant]
     Active Substance: ACETAMINOPHEN\OXYCODONE HYDROCHLORIDE

REACTIONS (4)
  - Drug effect delayed [Unknown]
  - Off label use [Unknown]
  - Dysgeusia [Unknown]
  - Product use issue [Unknown]

NARRATIVE: CASE EVENT DATE: 20141101
